FAERS Safety Report 4528601-0 (Version None)
Quarter: 2004Q4

REPORT INFORMATION
  Report Type: 
  Country: None (occurrence: None)
  Receive Date: 20041216
  Receipt Date: 20041202
  Transmission Date: 20050328
  Serious: Yes (Hospitalization)
  Sender: FDA-Public Use
  Company Number: PHBS2004CH16370

PATIENT
  Age: 92 Year
  Sex: Female

DRUGS (5)
  1. ASPIRIN [Concomitant]
     Dosage: 100 MG/DAY
  2. NORVASC [Concomitant]
     Dosage: 5 MG/DAY
  3. CORANGIN ^NOVARTIS^ [Concomitant]
     Dosage: 40 MG/DAY
  4. TEGRETOL [Suspect]
     Indication: TRIGEMINAL NEURALGIA
     Dosage: 400 MG/DAY
     Route: 048
     Dates: start: 20041023
  5. TEGRETOL [Suspect]
     Dosage: 200 MG/DAY
     Route: 048
     Dates: start: 20041027, end: 20041101

REACTIONS (17)
  - ASTHENIA [None]
  - CONVULSION [None]
  - DYSGEUSIA [None]
  - ELECTROENCEPHALOGRAM ABNORMAL [None]
  - FATIGUE [None]
  - HEADACHE [None]
  - HYPERHIDROSIS [None]
  - HYPERTENSION [None]
  - LOSS OF CONSCIOUSNESS [None]
  - MUSCULAR WEAKNESS [None]
  - NAUSEA [None]
  - NEURALGIA [None]
  - PALLOR [None]
  - TONIC CLONIC MOVEMENTS [None]
  - URINARY INCONTINENCE [None]
  - VERTIGO [None]
  - VOMITING [None]
